FAERS Safety Report 24112010 (Version 1)
Quarter: 2024Q3

REPORT INFORMATION
  Report Type: Spontaneous
  Country: US (occurrence: US)
  Receive Date: 20240719
  Receipt Date: 20240719
  Transmission Date: 20241017
  Serious: No
  Sender: SANOFI AVENTIS
  Company Number: US-SA-2024SA189866

PATIENT
  Age: 52 Year
  Sex: Female

DRUGS (2)
  1. KEVZARA [Suspect]
     Active Substance: SARILUMAB
     Indication: Polyarthritis
     Dosage: 200 MG, QOW
     Route: 058
     Dates: start: 202406
  2. ENBREL [Concomitant]
     Active Substance: BENZYL ALCOHOL\ETANERCEPT
     Dosage: UNK

REACTIONS (4)
  - Pain [Unknown]
  - Loss of personal independence in daily activities [Unknown]
  - Gait disturbance [Unknown]
  - Product use in unapproved indication [Unknown]

NARRATIVE: CASE EVENT DATE: 20240101
